FAERS Safety Report 6148197-X (Version None)
Quarter: 2009Q2

REPORT INFORMATION
  Report Type: 
  Country: None (occurrence: None)
  Receive Date: 20090408
  Receipt Date: 20090326
  Transmission Date: 20091009
  Serious: Yes (Other)
  Sender: FDA-Public Use
  Company Number: US-ROCHE-614561

PATIENT
  Sex: Male
  Weight: 79.4 kg

DRUGS (2)
  1. PEGASYS [Suspect]
     Indication: HEPATITIS C
     Route: 058
     Dates: start: 20070131, end: 20080102
  2. COPEGUS [Suspect]
     Indication: HEPATITIS C
     Route: 048
     Dates: start: 20070131, end: 20080102

REACTIONS (24)
  - AMNESIA [None]
  - ARTHRALGIA [None]
  - BACK PAIN [None]
  - BALANCE DISORDER [None]
  - COUGH [None]
  - DEPRESSION [None]
  - DIARRHOEA [None]
  - DIZZINESS [None]
  - DYSPNOEA [None]
  - FATIGUE [None]
  - HYPERSENSITIVITY [None]
  - IMPAIRED WORK ABILITY [None]
  - INFLUENZA LIKE ILLNESS [None]
  - INJECTION SITE HAEMATOMA [None]
  - INJECTION SITE PAIN [None]
  - INSOMNIA [None]
  - IRRITABILITY [None]
  - LUNG NEOPLASM [None]
  - MOOD ALTERED [None]
  - PHOTOSENSITIVITY REACTION [None]
  - PYREXIA [None]
  - RASH MACULAR [None]
  - RASH PRURITIC [None]
  - VOMITING [None]
